FAERS Safety Report 12562326 (Version 1)
Quarter: 2016Q3

REPORT INFORMATION
  Report Type: Spontaneous
  Country: CA (occurrence: CA)
  Receive Date: 20160715
  Receipt Date: 20160715
  Transmission Date: 20161109
  Serious: Yes (Other)
  Sender: FDA-Public Use
  Company Number: CA-HQ SPECIALTY-CA-2016INT000574

PATIENT
  Age: 50 Year
  Sex: Female

DRUGS (3)
  1. OXYCODONE [Concomitant]
     Active Substance: OXYCODONE
     Indication: PAIN
     Dosage: UNK
  2. PLAQUENIL                          /00072602/ [Suspect]
     Active Substance: HYDROXYCHLOROQUINE DIPHOSPHATE
     Indication: RHEUMATOID ARTHRITIS
     Dosage: 200 MG (200 MG,1 IN 1 D)
     Route: 048
     Dates: start: 201409
  3. METHOTREXATE SODIUM. [Suspect]
     Active Substance: METHOTREXATE SODIUM
     Indication: RHEUMATOID ARTHRITIS
     Dosage: 1.4286 MG (10 MG,1 IN 1 W)
     Route: 048

REACTIONS (8)
  - Herpes zoster [Not Recovered/Not Resolved]
  - Arthralgia [Unknown]
  - Staphylococcus test positive [Unknown]
  - Pneumonia [Not Recovered/Not Resolved]
  - Joint swelling [Unknown]
  - Lower respiratory tract infection [Not Recovered/Not Resolved]
  - Fungal infection [Not Recovered/Not Resolved]
  - Drug ineffective [Unknown]

NARRATIVE: CASE EVENT DATE: 201508
